FAERS Safety Report 20418473 (Version 1)
Quarter: 2022Q1

REPORT INFORMATION
  Report Type: Spontaneous
  Country: US (occurrence: US)
  Receive Date: 20220202
  Receipt Date: 20220202
  Transmission Date: 20220423
  Serious: No
  Sender: FDA-Public Use
  Company Number: US-GILEAD-2022-0567788

PATIENT
  Age: 31 Year
  Sex: Male

DRUGS (2)
  1. VEMLIDY [Suspect]
     Active Substance: TENOFOVIR ALAFENAMIDE FUMARATE
     Indication: Product used for unknown indication
     Route: 065
  2. ECOTRIN [Concomitant]
     Active Substance: ASPIRIN

REACTIONS (3)
  - Throat irritation [Unknown]
  - Product storage error [Unknown]
  - Rhinorrhoea [Unknown]
